FAERS Safety Report 4480119-X (Version None)
Quarter: 2004Q4

REPORT INFORMATION
  Report Type: 
  Country: None (occurrence: None)
  Receive Date: 20041020
  Receipt Date: 20040914
  Transmission Date: 20050328
  Serious: Yes (Hospitalization)
  Sender: FDA-Public Use
  Company Number: JP-MERCK-0409USA01635

PATIENT
  Age: 58 Year
  Sex: Male

DRUGS (12)
  1. GANATON [Concomitant]
     Route: 048
     Dates: end: 20040822
  2. PEPCID RPD [Suspect]
     Route: 048
     Dates: end: 20040822
  3. CALTAN [Concomitant]
     Route: 048
     Dates: end: 20040822
  4. SELBEX [Concomitant]
     Route: 048
     Dates: end: 20040822
  5. ISOSORBIDE MONONITRATE [Concomitant]
     Route: 048
     Dates: end: 20040822
  6. ALDOMET [Concomitant]
     Route: 048
     Dates: end: 20040822
  7. ADALAT [Concomitant]
     Route: 048
     Dates: end: 20040822
  8. ALESION [Concomitant]
     Route: 048
     Dates: end: 20040822
  9. ALOSENN [Concomitant]
     Route: 048
     Dates: end: 20040822
  10. LIPLE [Concomitant]
     Route: 042
     Dates: end: 20040822
  11. ROCALTROL [Concomitant]
     Route: 042
     Dates: end: 20040822
  12. RISUMIC [Concomitant]
     Route: 048
     Dates: end: 20040822

REACTIONS (3)
  - COGNITIVE DISORDER [None]
  - DEPRESSED LEVEL OF CONSCIOUSNESS [None]
  - HYPERTENSION [None]
